FAERS Safety Report 22014856 (Version 1)
Quarter: 2023Q1

REPORT INFORMATION
  Report Type: Spontaneous
  Country: US (occurrence: US)
  Receive Date: 20230221
  Receipt Date: 20230221
  Transmission Date: 20230418
  Serious: No
  Sender: FDA-Public Use
  Company Number: US-ELI_LILLY_AND_COMPANY-US202302009407

PATIENT
  Age: 53 Year
  Sex: Female

DRUGS (2)
  1. MOUNJARO [Suspect]
     Active Substance: TIRZEPATIDE
     Indication: General physical health deterioration
     Dosage: 7.5 MG, UNKNOWN
     Route: 065
     Dates: start: 202207
  2. MOUNJARO [Suspect]
     Active Substance: TIRZEPATIDE
     Indication: General physical health deterioration
     Dosage: 10 MG, OTHER (FOR THREE WEEKS)
     Route: 065

REACTIONS (5)
  - Product dose omission issue [Unknown]
  - Off label use [Unknown]
  - Product administered at inappropriate site [Unknown]
  - Inappropriate schedule of product administration [Unknown]
  - Nausea [Unknown]

NARRATIVE: CASE EVENT DATE: 20230217
